FAERS Safety Report 7974537-2 (Version None)
Quarter: 2011Q4

REPORT INFORMATION
  Report Type: 
  Country: None (occurrence: None)
  Receive Date: 20111213
  Receipt Date: 20111209
  Transmission Date: 20120403
  Serious: Yes (Death)
  Sender: FDA-Public Use
  Company Number: US-ASTRAZENECA-2011SE73056

PATIENT
  Age: 98 Year
  Sex: Female

DRUGS (6)
  1. HIGH BLOOD PRESSURE MEDICATIONS [Concomitant]
     Indication: HYPERTENSION
  2. SYMBICORT [Suspect]
     Route: 055
     Dates: end: 20111120
  3. LEVOTHYROXINE SODIUM [Concomitant]
  4. ALBUTEROL NEBULIZERS [Concomitant]
  5. ASPIRIN [Concomitant]
  6. LEXAPRO [Concomitant]

REACTIONS (5)
  - CARDIO-RESPIRATORY ARREST [None]
  - HYPERTENSION [None]
  - ACUTE RESPIRATORY FAILURE [None]
  - DEMENTIA [None]
  - CHRONIC OBSTRUCTIVE PULMONARY DISEASE [None]
